FAERS Safety Report 6670741-4 (Version None)
Quarter: 2010Q2

REPORT INFORMATION
  Report Type: 
  Country: None (occurrence: None)
  Receive Date: 20100407
  Receipt Date: 20100324
  Transmission Date: 20101027
  Serious: Yes (Other)
  Sender: FDA-Public Use
  Company Number: PHEH2010US03366

PATIENT
  Sex: Female

DRUGS (3)
  1. GENTEAL LUBRICANT EYE DROPS (NVO) [Suspect]
  2. COSOPT [Concomitant]
  3. LOTEMAX [Concomitant]

REACTIONS (5)
  - BLINDNESS [None]
  - CONJUNCTIVITIS [None]
  - CORNEAL TRANSPLANT [None]
  - EYE PAIN [None]
  - EYELID OEDEMA [None]
